FAERS Safety Report 9619750 (Version 1)
Quarter: 2013Q4

REPORT INFORMATION
  Report Type: Spontaneous
  Country: US (occurrence: US)
  Receive Date: 20131014
  Receipt Date: 20131014
  Transmission Date: 20140711
  Serious: Yes (Hospitalization)
  Sender: FDA-Public Use
  Company Number: US-GLAXOSMITHKLINE-A1045296A

PATIENT
  Sex: Male

DRUGS (1)
  1. VOTRIENT [Suspect]
     Indication: RENAL CANCER
     Route: 065

REACTIONS (8)
  - Hospitalisation [Unknown]
  - Dyspnoea [Unknown]
  - Dehydration [Unknown]
  - Blood sodium decreased [Unknown]
  - Blood magnesium decreased [Unknown]
  - Diarrhoea [Unknown]
  - Fatigue [Unknown]
  - Dysgeusia [Unknown]
